FAERS Safety Report 24644310 (Version 1)
Quarter: 2024Q4

REPORT INFORMATION
  Report Type: Report from Study
  Country: KR (occurrence: KR)
  Receive Date: 20241120
  Receipt Date: 20241120
  Transmission Date: 20250114
  Serious: Yes (Hospitalization)
  Sender: ALEXION PHARMACEUTICALS
  Company Number: KR-AstraZeneca-CH-00746973A

PATIENT

DRUGS (4)
  1. TAGRISSO [Suspect]
     Active Substance: OSIMERTINIB
     Indication: Lung neoplasm malignant
     Dosage: UNK
  2. TAGRISSO [Suspect]
     Active Substance: OSIMERTINIB
     Dosage: UNK
  3. TAGRISSO [Suspect]
     Active Substance: OSIMERTINIB
     Dosage: UNK
  4. TAGRISSO [Suspect]
     Active Substance: OSIMERTINIB
     Dosage: UNK

REACTIONS (1)
  - Pelvic pain [Not Recovered/Not Resolved]
